FAERS Safety Report 16326704 (Version 1)
Quarter: 2019Q2

REPORT INFORMATION
  Report Type: Report from Study
  Country: None (occurrence: US)
  Receive Date: 20190517
  Receipt Date: 20190517
  Transmission Date: 20190711
  Serious: Yes (Other)
  Sender: FDA-Public Use
  Company Number: US-TAIHO ONCOLOGY  INC-EU-2019-00506

PATIENT
  Sex: Female

DRUGS (40)
  1. BIOTIN [Concomitant]
     Active Substance: BIOTIN
     Dates: start: 20190118
  2. CHROMIUM PIC [Concomitant]
     Dates: start: 20190118
  3. CLARITIN-D NOS [Concomitant]
     Active Substance: LORATADINE\PSEUDOEPHEDRINE SULFATE
     Dosage: 10-240MG
     Dates: start: 20190118
  4. TRAMADOL HCL [Concomitant]
     Active Substance: TRAMADOL HYDROCHLORIDE
     Dates: start: 20170828
  5. CARTIA XT [Concomitant]
     Active Substance: DILTIAZEM HYDROCHLORIDE
     Dosage: 120/24HR
     Dates: start: 20170828
  6. FISH OIL [Concomitant]
     Active Substance: FISH OIL
     Dates: start: 20170828
  7. GLUCOSAMINE [Concomitant]
     Active Substance: GLUCOSAMINE
     Dates: start: 20170828
  8. HYDROCHLOROT [Concomitant]
     Active Substance: HYDROCHLOROTHIAZIDE
     Dates: start: 20190118
  9. ICAPS LUTEIN /OMEGA 3 [Concomitant]
     Dates: start: 20190118
  10. SIMVASTATIN. [Concomitant]
     Active Substance: SIMVASTATIN
     Dates: start: 20170828
  11. VITAMIN D3 [Concomitant]
     Active Substance: CHOLECALCIFEROL
     Dosage: 1000 UNIT
     Dates: start: 20190118
  12. PROMETHAZINE [Concomitant]
     Active Substance: PROMETHAZINE\PROMETHAZINE HYDROCHLORIDE
     Dates: start: 20171010
  13. CENTRUM SILVER [Concomitant]
     Active Substance: MINERALS\VITAMINS
     Dates: start: 20190118
  14. DILTIAZEM. [Concomitant]
     Active Substance: DILTIAZEM
     Dates: start: 20190118
  15. FLONASE [Concomitant]
     Active Substance: FLUTICASONE PROPIONATE
     Dates: start: 20190118
  16. ATENOLOL. [Concomitant]
     Active Substance: ATENOLOL
     Dates: start: 20190118
  17. ATIVAN [Concomitant]
     Active Substance: LORAZEPAM
     Dates: start: 20190118
  18. DULOXETINE. [Concomitant]
     Active Substance: DULOXETINE
     Dates: start: 20180312
  19. LOMOTIL [Concomitant]
     Active Substance: ATROPINE SULFATE\DIPHENOXYLATE HYDROCHLORIDE
     Dates: start: 20171010
  20. MAGNESIUM-OX [Concomitant]
     Dates: start: 20190118
  21. METOPROLOL SUC [Concomitant]
     Dosage: ER
     Dates: start: 20180312
  22. OMEGA-3 ACIDS [Concomitant]
     Active Substance: OMEGA-3 FATTY ACIDS
     Dates: start: 20190118
  23. TOPROL XL [Concomitant]
     Active Substance: METOPROLOL SUCCINATE
     Dates: start: 20190118
  24. NYSTATIN. [Concomitant]
     Active Substance: NYSTATIN
     Dosage: 100000
     Dates: start: 20190118
  25. ONDANSETRON [Concomitant]
     Active Substance: ONDANSETRON
     Dates: start: 20171010
  26. PRAVASTATIN. [Concomitant]
     Active Substance: PRAVASTATIN
     Dates: start: 20190118
  27. TOBRAMYCIN. [Concomitant]
     Active Substance: TOBRAMYCIN
     Dosage: SOL OP
     Dates: start: 20190118
  28. LONSURF [Suspect]
     Active Substance: TIPIRACIL HYDROCHLORIDE\TRIFLURIDINE
     Dosage: CURRENT CYCLE UNKNOWN
     Route: 048
     Dates: start: 20190322
  29. CINNAMON. [Concomitant]
     Active Substance: CINNAMON
     Dates: start: 20190118
  30. TYLENOL [Concomitant]
     Active Substance: ACETAMINOPHEN
     Dates: start: 20190118
  31. LONSURF [Suspect]
     Active Substance: TIPIRACIL HYDROCHLORIDE\TRIFLURIDINE
     Indication: COLON CANCER
     Dosage: DOSAGE, FREQUENCY AND CURRENT CYCLE UNKNOWN. REPORTED AS: 2 X 30 MG AM (STRENGTH NOT MARKETED) AND 1
     Route: 048
  32. AVASTIN [Concomitant]
     Active Substance: BEVACIZUMAB
     Dosage: 400/16ML
     Dates: start: 20171010
  33. CALCIUM + D [Concomitant]
     Active Substance: CALCIUM\VITAMIN D
     Dosage: 600
     Dates: start: 20190118
  34. LORAZEPAM. [Concomitant]
     Active Substance: LORAZEPAM
     Dates: start: 20171205
  35. CAMPTOSAR [Concomitant]
     Active Substance: IRINOTECAN HYDROCHLORIDE
     Dosage: 40MG/2ML
     Dates: start: 20171010
  36. CHONDROITIN SULFATE [Concomitant]
     Active Substance: CHONDROITIN SULFATE (BOVINE)
     Dates: start: 20190118
  37. DILTIAZEM. [Concomitant]
     Active Substance: DILTIAZEM
     Dosage: 240MG/24
     Dates: start: 20190118
  38. HYDROCHLOROT [Concomitant]
     Active Substance: HYDROCHLOROTHIAZIDE
     Dates: start: 20180312
  39. KLOR-CON M10 [Concomitant]
     Active Substance: POTASSIUM CHLORIDE
     Dosage: ER
     Dates: start: 20190118
  40. LEVOTHYROXIN [Concomitant]
     Active Substance: LEVOTHYROXINE
     Dates: start: 20170828

REACTIONS (5)
  - Asthenia [Not Recovered/Not Resolved]
  - Nausea [Not Recovered/Not Resolved]
  - Haemoglobin decreased [Not Recovered/Not Resolved]
  - Fatigue [Not Recovered/Not Resolved]
  - Product dose omission [Unknown]

NARRATIVE: CASE EVENT DATE: 2019
